FAERS Safety Report 8677584 (Version 2)
Quarter: 2012Q4

REPORT INFORMATION
  Report Type: 
  Country: US (occurrence: US)
  Receive Date: 20120723
  Receipt Date: 20120912
  Transmission Date: 20130627
  Serious: Yes (Death, Other)
  Sender: FDA-Public Use
  Company Number: US-PFIZER INC-2012173667

PATIENT
  Age: 66 Year
  Sex: Male

DRUGS (1)
  1. REVATIO [Suspect]
     Indication: PULMONARY HYPERTENSION
     Dosage: 20 mg, 1 tab daily
     Dates: start: 20110624

REACTIONS (2)
  - Pulmonary hypertension [Fatal]
  - Disease progression [Fatal]
